FAERS Safety Report 18991547 (Version 2)
Quarter: 2021Q1

REPORT INFORMATION
  Report Type: Spontaneous
  Country: DE (occurrence: DE)
  Receive Date: 20210310
  Receipt Date: 20210323
  Transmission Date: 20210420
  Serious: Yes (Other)
  Sender: FDA-Public Use
  Company Number: DE-TEVA-2020-DE-1212257

PATIENT
  Age: 37 Year
  Sex: Female

DRUGS (3)
  1. ESCITALOPRAM [Suspect]
     Active Substance: ESCITALOPRAM OXALATE
     Indication: DEPRESSION
     Route: 048
     Dates: start: 20180323
  2. AJOVY [Suspect]
     Active Substance: FREMANEZUMAB-VFRM
     Indication: MIGRAINE
     Dosage: INJECTED 9TH TIMES, ONCE PER MONTH
  3. TRIMIPRAMINE [Suspect]
     Active Substance: TRIMIPRAMINE
     Indication: DEPRESSION
     Dosage: TRIMIPRAMIN 100 MG
     Route: 048
     Dates: start: 20190326, end: 20200323

REACTIONS (2)
  - Abortion spontaneous [Unknown]
  - Maternal exposure during pregnancy [Unknown]

NARRATIVE: CASE EVENT DATE: 202004
